FAERS Safety Report 8553061-2 (Version None)
Quarter: 2012Q3

REPORT INFORMATION
  Report Type: 
  Country: None (occurrence: None)
  Receive Date: 20120731
  Receipt Date: 20120723
  Transmission Date: 20120928
  Serious: Yes (Other)
  Sender: FDA-Public Use
  Company Number: US-SANOFI-AVENTIS-2012SA052364

PATIENT
  Age: 14 Year
  Sex: Male

DRUGS (6)
  1. DILTIAZEM HCL [Suspect]
     Route: 065
  2. ESMOLOL HCL [Concomitant]
  3. AMIODARONE HCL [Suspect]
     Route: 042
  4. MULTAQ [Suspect]
     Route: 065
  5. PROPRANOLOL [Concomitant]
  6. AMIODARONE HCL [Suspect]
     Route: 042

REACTIONS (3)
  - DRUG INEFFECTIVE [None]
  - VENTRICULAR TACHYCARDIA [None]
  - ABDOMINAL DISCOMFORT [None]
